FAERS Safety Report 15854174 (Version 2)
Quarter: 2019Q1

REPORT INFORMATION
  Report Type: Report from Study
  Country: CN (occurrence: CN)
  Receive Date: 20190122
  Receipt Date: 20190125
  Transmission Date: 20190417
  Serious: Yes (Death, Life-Threatening, Hospitalization)
  Sender: FDA-Public Use
  Company Number: CN-ASTRAZENECA-2018SF71288

PATIENT
  Age: 21013 Day
  Sex: Male

DRUGS (11)
  1. CODEINE PHOSPHATE [Concomitant]
     Active Substance: CODEINE PHOSPHATE
     Indication: COUGH
     Route: 048
     Dates: start: 20181220
  2. ONDANSETRON HYDROCHLORIDE. [Concomitant]
     Active Substance: ONDANSETRON HYDROCHLORIDE
     Indication: NAUSEA
     Route: 048
     Dates: start: 20181219, end: 20181220
  3. DEXAMETHASONE SODIUM PHOSPHATE. [Concomitant]
     Active Substance: DEXAMETHASONE SODIUM PHOSPHATE
     Indication: GASTROINTESTINAL DISORDER
     Route: 042
     Dates: start: 20181213, end: 20181213
  4. POTASSIUM CHLORIDE. [Concomitant]
     Active Substance: POTASSIUM CHLORIDE
     Indication: MINERAL SUPPLEMENTATION
     Route: 048
     Dates: start: 20181214, end: 20181219
  5. METOCLOPRAMIDE. [Concomitant]
     Active Substance: METOCLOPRAMIDE
     Indication: NAUSEA
     Dosage: 10 MG
     Route: 030
     Dates: start: 20181219, end: 20181219
  6. HYDROTALCITE [Concomitant]
     Active Substance: HYDROTALCITE
     Indication: GASTRIC ULCER
     Route: 048
     Dates: start: 20181219, end: 20181221
  7. TRADITIONAL CHINESE MEDICINE NOS [Concomitant]
     Active Substance: HERBALS
     Indication: COUGH
     Dosage: 20.0MG AS REQUIRED
     Route: 048
     Dates: start: 20181125
  8. HYDROTALCITE [Concomitant]
     Active Substance: HYDROTALCITE
     Indication: GASTROOESOPHAGEAL REFLUX DISEASE
     Route: 048
     Dates: start: 20181219, end: 20181221
  9. DURVALUMAB. [Suspect]
     Active Substance: DURVALUMAB
     Indication: NON-SMALL CELL LUNG CANCER
     Route: 042
     Dates: start: 20181218, end: 20181218
  10. COMPOUND LIQUORICE TABLET [Concomitant]
     Indication: COUGH
     Route: 048
     Dates: start: 20181214
  11. CIMETIDINE [Concomitant]
     Active Substance: CIMETIDINE
     Indication: ABDOMINAL DISCOMFORT
     Dosage: 200 MG
     Route: 042
     Dates: start: 20181219, end: 20181219

REACTIONS (6)
  - Cardiogenic shock [Recovered/Resolved]
  - Arrhythmia [Recovering/Resolving]
  - Immune-mediated hepatitis [Recovering/Resolving]
  - Myocarditis [Recovering/Resolving]
  - Disseminated intravascular coagulation [Fatal]
  - Hepatic failure [Recovering/Resolving]

NARRATIVE: CASE EVENT DATE: 20181225
